FAERS Safety Report 11811203 (Version 4)
Quarter: 2016Q2

REPORT INFORMATION
  Report Type: Report from Study
  Country: US (occurrence: US)
  Receive Date: 20151208
  Receipt Date: 20160413
  Transmission Date: 20160815
  Serious: No
  Sender: FDA-Public Use
  Company Number: US-AMGEN-USASL2015129518

PATIENT
  Age: 37 Year
  Sex: Female
  Weight: 122.9 kg

DRUGS (8)
  1. CLOBETASOL [Concomitant]
     Active Substance: CLOBETASOL
     Dosage: 0.05 MG, BID
     Route: 061
  2. TIZANIDINE. [Concomitant]
     Active Substance: TIZANIDINE
     Indication: MUSCLE SPASMS
  3. ENBREL [Suspect]
     Active Substance: ETANERCEPT
     Dosage: 50 MG, QWK
     Route: 058
     Dates: start: 20151228
  4. PROZAC [Concomitant]
     Active Substance: FLUOXETINE HYDROCHLORIDE
     Indication: DEPRESSION
     Dosage: 20 MG, QD
     Route: 048
  5. ENBREL [Suspect]
     Active Substance: ETANERCEPT
     Indication: PSORIATIC ARTHROPATHY
     Dosage: 50 MG, QWK
     Route: 058
     Dates: start: 20150424, end: 201512
  6. TIZANIDINE. [Concomitant]
     Active Substance: TIZANIDINE
     Indication: PAIN
     Dosage: 20 MG, UNK
  7. OXYTOCIN. [Concomitant]
     Active Substance: OXYTOCIN
     Indication: PAIN
     Dosage: 20 MG, BID
     Route: 048
  8. ETODOLAC. [Concomitant]
     Active Substance: ETODOLAC
     Indication: PAIN IN EXTREMITY
     Dosage: 500 MG, BID
     Route: 048

REACTIONS (10)
  - Injection site bruising [Recovered/Resolved]
  - Injection site haemorrhage [Unknown]
  - Joint swelling [Unknown]
  - Pain [Unknown]
  - Drug dose omission [Unknown]
  - Injection site mass [Recovered/Resolved]
  - Injection site pain [Recovered/Resolved]
  - Ear infection [Unknown]
  - Fatigue [Unknown]
  - Hypertension [Unknown]

NARRATIVE: CASE EVENT DATE: 2015
